FAERS Safety Report 20147487 (Version 2)
Quarter: 2021Q4

REPORT INFORMATION
  Report Type: Spontaneous
  Country: US (occurrence: US)
  Receive Date: 20211203
  Receipt Date: 20211207
  Transmission Date: 20220303
  Serious: No
  Sender: FDA-Public Use
  Company Number: US-SANOFI-00870576

PATIENT
  Age: 19 Year
  Sex: Female

DRUGS (3)
  1. DUPIXENT [Suspect]
     Active Substance: DUPILUMAB
     Indication: Asthma
     Dosage: 300 MG, QOW
  2. DUPIXENT [Suspect]
     Active Substance: DUPILUMAB
     Indication: Eczema
  3. COVID-19 VACCINE NOS [Suspect]
     Active Substance: COVID-19 VACCINE NOS
     Indication: Immunisation

REACTIONS (6)
  - Injection site pain [Unknown]
  - Eczema [Unknown]
  - Symptom recurrence [Unknown]
  - Rash [Unknown]
  - Drug ineffective [Unknown]
  - Inappropriate schedule of product administration [Unknown]

NARRATIVE: CASE EVENT DATE: 20211117
